FAERS Safety Report 12103109 (Version 3)
Quarter: 2016Q1

REPORT INFORMATION
  Report Type: Spontaneous
  Country: IT (occurrence: IT)
  Receive Date: 20160222
  Receipt Date: 20160229
  Transmission Date: 20160526
  Serious: Yes (Hospitalization)
  Sender: FDA-Public Use
  Company Number: IT-009507513-1602ITA008897

PATIENT
  Age: 68 Year
  Sex: Male

DRUGS (3)
  1. REBETOL [Suspect]
     Active Substance: RIBAVIRIN
     Indication: HEPATITIS C ANTIBODY POSITIVE
     Dosage: 800 MG DAILY
     Route: 048
     Dates: start: 20160201, end: 20160205
  2. EXVIERA [Suspect]
     Active Substance: DASABUVIR
     Indication: HEPATITIS C ANTIBODY POSITIVE
     Dosage: 500 MG DAILY
     Route: 048
     Dates: start: 20160201, end: 20160205
  3. VIEKIRAX [Suspect]
     Active Substance: OMBITASVIR\PARITAPREVIR\RITONAVIR
     Indication: HEPATITIS C ANTIBODY POSITIVE
     Dosage: 25 MG DAILY
     Route: 048
     Dates: start: 20160201, end: 20160205

REACTIONS (4)
  - Jaundice cholestatic [Unknown]
  - Ascites [Unknown]
  - Acute kidney injury [Unknown]
  - Hepatic failure [Unknown]

NARRATIVE: CASE EVENT DATE: 20160205
